FAERS Safety Report 5377633-1 (Version None)
Quarter: 2007Q3

REPORT INFORMATION
  Report Type: 
  Country: None (occurrence: None)
  Receive Date: 20070703
  Receipt Date: 20070621
  Transmission Date: 20080115
  Serious: Yes (Other)
  Sender: FDA-Public Use
  Company Number: CA-PFIZER INC-2007050699

PATIENT
  Age: 49 Year
  Sex: Female

DRUGS (7)
  1. LYRICA [Suspect]
     Indication: NEURALGIA
     Route: 048
  2. ESTRACE [Concomitant]
  3. OXYCONTIN [Concomitant]
  4. COX-189 [Concomitant]
  5. AVENTYL HCL [Concomitant]
  6. NASONEX [Concomitant]
  7. TYLENOL [Concomitant]

REACTIONS (2)
  - NIPPLE PAIN [None]
  - VULVAL DISORDER [None]
